FAERS Safety Report 12777438 (Version 2)
Quarter: 2017Q4

REPORT INFORMATION
  Report Type: Spontaneous
  Country: US (occurrence: US)
  Receive Date: 20160924
  Receipt Date: 20171031
  Transmission Date: 20180320
  Serious: No
  Sender: FDA-Public Use
  Company Number: US-CELGENEUS-USA-2016095431

PATIENT
  Age: 45 Year
  Sex: Female
  Weight: 52.21 kg

DRUGS (5)
  1. OTEZLA [Suspect]
     Active Substance: APREMILAST
     Indication: PSORIATIC ARTHROPATHY
     Dosage: 60 MILLIGRAM
     Route: 048
  2. OTEZLA [Suspect]
     Active Substance: APREMILAST
     Indication: PSORIASIS
     Dosage: STARTER PACK
     Route: 048
     Dates: start: 20160829
  3. ALLEGRA [Concomitant]
     Active Substance: FEXOFENADINE HYDROCHLORIDE
     Indication: PRODUCT USED FOR UNKNOWN INDICATION
     Dosage: 180 MICROGRAM
     Route: 065
     Dates: start: 2015
  4. TIROSINT [Concomitant]
     Active Substance: LEVOTHYROXINE SODIUM
     Indication: PRODUCT USED FOR UNKNOWN INDICATION
     Dosage: 75 MICROGRAM
     Route: 065
     Dates: start: 2015
  5. ENBREL [Concomitant]
     Active Substance: ETANERCEPT
     Indication: PRODUCT USED FOR UNKNOWN INDICATION
     Route: 065
     Dates: end: 20160912

REACTIONS (1)
  - Pruritus [Recovering/Resolving]

NARRATIVE: CASE EVENT DATE: 20160919
